FAERS Safety Report 24009479 (Version 1)
Quarter: 2024Q2

REPORT INFORMATION
  Report Type: Spontaneous
  Country: CZ (occurrence: CZ)
  Receive Date: 20240625
  Receipt Date: 20240625
  Transmission Date: 20240716
  Serious: Yes (Life-Threatening, Other)
  Sender: FDA-Public Use
  Company Number: CZ-SUN PHARMACEUTICAL INDUSTRIES LTD-2024R1-452101

PATIENT
  Age: 39 Year
  Sex: Female

DRUGS (6)
  1. PREDNISONE [Suspect]
     Active Substance: PREDNISONE
     Indication: Lymphadenopathy
     Dosage: 100 MILLIGRAM, DAILY
     Route: 065
     Dates: start: 20210623
  2. DOXORUBICIN [Suspect]
     Active Substance: DOXORUBICIN
     Indication: Lymphadenopathy
     Dosage: 50 MILLIGRAM/SQ. METER
     Route: 042
     Dates: start: 20210623
  3. BRENTUXIMAB VEDOTIN [Suspect]
     Active Substance: BRENTUXIMAB VEDOTIN
     Indication: Lymphadenopathy
     Dosage: 1.8 MILLIGRAM/KILOGRAM
     Route: 042
     Dates: start: 20210623
  4. BRENTUXIMAB VEDOTIN [Suspect]
     Active Substance: BRENTUXIMAB VEDOTIN
     Dosage: 1.2 MILLIGRAM/KILOGRAM
     Route: 042
  5. CYCLOPHOSPHAMIDE [Suspect]
     Active Substance: CYCLOPHOSPHAMIDE
     Indication: Lymphadenopathy
     Dosage: 750 MILLIGRAM/SQ. METER
     Route: 042
     Dates: start: 20210623
  6. ETOPOSIDE [Suspect]
     Active Substance: ETOPOSIDE
     Indication: Lymphadenopathy
     Dosage: 100 MILLIGRAM/SQ. METER
     Route: 042
     Dates: start: 20210623

REACTIONS (9)
  - Neutropenia [Unknown]
  - Toxicity to various agents [Unknown]
  - Microangiopathy [Unknown]
  - Tonsillitis [Unknown]
  - Vomiting [Unknown]
  - Nausea [Unknown]
  - Upper respiratory tract infection [Unknown]
  - Arthralgia [Unknown]
  - Raynaud^s phenomenon [Unknown]
